FAERS Safety Report 6359389-9 (Version None)
Quarter: 2009Q3

REPORT INFORMATION
  Report Type: 
  Country: None (occurrence: None)
  Receive Date: 20090917
  Receipt Date: 20090909
  Transmission Date: 20100115
  Serious: Yes (Life-Threatening, Other)
  Sender: FDA-Public Use
  Company Number: FR-BAXTER-2009BH007826

PATIENT
  Age: 36 Year
  Sex: Female

DRUGS (12)
  1. ENDOXAN BAXTER [Suspect]
     Indication: BONE MARROW TRANSPLANT
     Route: 042
     Dates: start: 20090217, end: 20090220
  2. CARBOPLATIN [Suspect]
     Indication: BONE MARROW TRANSPLANT
     Route: 042
     Dates: start: 20090217, end: 20090220
  3. ETOPOSIDE [Suspect]
     Indication: BONE MARROW TRANSPLANT
     Route: 042
     Dates: start: 20090217, end: 20090220
  4. TIORFAN [Concomitant]
     Indication: DRUG USE FOR UNKNOWN INDICATION
     Route: 065
  5. FLAGYL [Concomitant]
     Indication: DRUG USE FOR UNKNOWN INDICATION
     Route: 065
  6. ZOPHREN [Concomitant]
     Indication: DRUG USE FOR UNKNOWN INDICATION
     Route: 065
  7. EMEND [Concomitant]
     Indication: DRUG USE FOR UNKNOWN INDICATION
     Route: 065
  8. CHLORPROMAZINE [Concomitant]
     Indication: DRUG USE FOR UNKNOWN INDICATION
     Route: 065
  9. CEFTAZIDIME [Concomitant]
     Indication: DRUG USE FOR UNKNOWN INDICATION
     Route: 065
     Dates: start: 20090223
  10. AMIKLIN [Concomitant]
     Indication: DRUG USE FOR UNKNOWN INDICATION
     Route: 065
     Dates: start: 20090223, end: 20090223
  11. CIFLOX [Concomitant]
     Indication: DRUG USE FOR UNKNOWN INDICATION
     Route: 065
     Dates: start: 20090224
  12. OLICLINOMEL [Concomitant]
     Indication: DRUG USE FOR UNKNOWN INDICATION
     Route: 065
     Dates: start: 20090225

REACTIONS (3)
  - NEPHRITIC SYNDROME [None]
  - PULMONARY ALVEOLAR HAEMORRHAGE [None]
  - THROMBOTIC MICROANGIOPATHY [None]
